FAERS Safety Report 7012630-1 (Version None)
Quarter: 2010Q3

REPORT INFORMATION
  Report Type: 
  Country: None (occurrence: None)
  Receive Date: 20100924
  Receipt Date: 20100917
  Transmission Date: 20110219
  Serious: Yes (Hospitalization)
  Sender: FDA-Public Use
  Company Number: JP-ROCHE-668261

PATIENT
  Sex: Male

DRUGS (5)
  1. TOCILIZUMAB [Suspect]
     Indication: RHEUMATOID ARTHRITIS
     Dosage: UNCERTAINTY
     Route: 041
     Dates: start: 20090915, end: 20090915
  2. TOCILIZUMAB [Suspect]
     Dosage: UNCERTAINTY
     Route: 041
     Dates: start: 20091009, end: 20091009
  3. PROGRAF [Concomitant]
     Dosage: PROGRAF(TACROLIMUS HYDRATE)
     Route: 048
     Dates: end: 20090831
  4. PREDNISOLONE [Concomitant]
     Dosage: FORM: PERORAL AGENT
     Route: 048
     Dates: start: 20090911
  5. VOLTAREN [Concomitant]
     Dosage: VOLTAREN(DICLOFENAC SODIUM)
     Route: 048

REACTIONS (1)
  - INTERSTITIAL LUNG DISEASE [None]
